FAERS Safety Report 8586784-X (Version None)
Quarter: 2012Q3

REPORT INFORMATION
  Report Type: 
  Country: None (occurrence: None)
  Receive Date: 20120810
  Receipt Date: 20120806
  Transmission Date: 20120928
  Serious: Yes (Life-Threatening, Hospitalization, Other)
  Sender: FDA-Public Use
  Company Number: DE-ELI_LILLY_AND_COMPANY-DE201208001528

PATIENT
  Sex: Male

DRUGS (5)
  1. DEKRISTOL [Concomitant]
  2. FORTEO [Suspect]
     Dosage: UNK, QD
     Route: 058
     Dates: start: 20110919, end: 20120726
  3. METFORMIN HYDROCHLORIDE [Concomitant]
     Dosage: 1000 MG, UNK
  4. FORTEO [Suspect]
     Dosage: UNK, QD
     Dates: start: 20120804
  5. INSULIN [Concomitant]

REACTIONS (3)
  - HIP ARTHROPLASTY [None]
  - HAEMORRHAGE [None]
  - CEREBROVASCULAR ACCIDENT [None]
